FAERS Safety Report 10085444 (Version 1)
Quarter: 2014Q2

REPORT INFORMATION
  Report Type: Spontaneous
  Country: US (occurrence: US)
  Receive Date: 20140418
  Receipt Date: 20140418
  Transmission Date: 20141212
  Serious: Yes (Other)
  Sender: FDA-Public Use
  Company Number: US-BIOGENIDEC-2014BI035099

PATIENT
  Sex: Female

DRUGS (4)
  1. AVONEX [Suspect]
     Indication: MULTIPLE SCLEROSIS
     Route: 030
     Dates: start: 20140210
  2. HYDROCHLOROTHIAZIDE [Concomitant]
  3. FEXOFENADINE HCL [Concomitant]
  4. MECLIZINE HCL [Concomitant]

REACTIONS (1)
  - Breast cancer [Unknown]
